FAERS Safety Report 5593138-7 (Version None)
Quarter: 2008Q1

REPORT INFORMATION
  Report Type: 
  Country: None (occurrence: None)
  Receive Date: 20080114
  Receipt Date: 20080114
  Transmission Date: 20080703
  Serious: Yes (Other)
  Sender: FDA-Public Use
  Company Number: None

PATIENT
  Age: 47 Year
  Sex: Female
  Weight: 104.3273 kg

DRUGS (1)
  1. LEVAQUIN [Suspect]
     Indication: SINUSITIS
     Dosage: 750 MG  1 DAILY  PO
     Route: 048
     Dates: start: 20070929, end: 20071006

REACTIONS (6)
  - ARTHRALGIA [None]
  - CARTILAGE INJURY [None]
  - IRRITABILITY [None]
  - MOOD SWINGS [None]
  - MYALGIA [None]
  - TINNITUS [None]
